FAERS Safety Report 10642872 (Version 6)
Quarter: 2015Q3

REPORT INFORMATION
  Report Type: Spontaneous
  Country: US (occurrence: US)
  Receive Date: 20141210
  Receipt Date: 20150908
  Transmission Date: 20151125
  Serious: Yes (Hospitalization)
  Sender: FDA-Public Use
  Company Number: US-PFIZER INC-2014335216

PATIENT
  Age: 70 Year
  Sex: Female
  Weight: 105 kg

DRUGS (27)
  1. CLONIDINE. [Concomitant]
     Active Substance: CLONIDINE
     Indication: DIABETES MELLITUS
  2. TRAMADOL. [Concomitant]
     Active Substance: TRAMADOL
     Indication: CARDIAC DISORDER
     Dosage: UNK
     Dates: start: 2005
  3. PLAVIX [Concomitant]
     Active Substance: CLOPIDOGREL BISULFATE
     Indication: DIABETES MELLITUS
  4. LOVASTATIN. [Concomitant]
     Active Substance: LOVASTATIN
     Indication: CARDIAC DISORDER
     Dosage: UNK
     Dates: start: 2005
  5. PROTONIX [Concomitant]
     Active Substance: PANTOPRAZOLE SODIUM
     Indication: DIABETES MELLITUS
  6. CALCITRIOL. [Concomitant]
     Active Substance: CALCITRIOL
     Indication: DIABETES MELLITUS
  7. COMPAZINE [Concomitant]
     Active Substance: PROCHLORPERAZINE MALEATE
     Indication: DIABETES MELLITUS
  8. NORVASC [Concomitant]
     Active Substance: AMLODIPINE BESYLATE
     Indication: CARDIAC DISORDER
     Dosage: UNK
     Dates: start: 2005
  9. FISH OIL [Concomitant]
     Active Substance: FISH OIL
     Indication: DIABETES MELLITUS
  10. AMLODIPINE [Concomitant]
     Active Substance: AMLODIPINE BESYLATE
     Indication: CARDIAC DISORDER
     Dosage: UNK
     Dates: start: 2005
  11. LOVASTATIN. [Concomitant]
     Active Substance: LOVASTATIN
     Indication: DIABETES MELLITUS
  12. SUTENT [Suspect]
     Active Substance: SUNITINIB MALATE
     Indication: RENAL CANCER METASTATIC
     Dosage: 37.5 MG, CYCLIC (4 WEEKS ON, 2 WEEKS OFF)
     Dates: start: 20140625, end: 2014
  13. METOPROLOL [Concomitant]
     Active Substance: METOPROLOL
     Indication: CARDIAC DISORDER
     Dosage: UNK
     Dates: start: 2005
  14. CLONIDINE. [Concomitant]
     Active Substance: CLONIDINE
     Indication: CARDIAC DISORDER
     Dosage: UNK
     Dates: start: 2005
  15. SUTENT [Suspect]
     Active Substance: SUNITINIB MALATE
     Dosage: 25 MG, CYCLIC (2 WEEKS ON/1 WEEK OFF)
     Dates: start: 201411, end: 20150708
  16. NORVASC [Concomitant]
     Active Substance: AMLODIPINE BESYLATE
     Indication: DIABETES MELLITUS
  17. METOPROLOL [Concomitant]
     Active Substance: METOPROLOL
     Indication: DIABETES MELLITUS
  18. ZOFRAN [Concomitant]
     Active Substance: ONDANSETRON HYDROCHLORIDE
     Dosage: UNK
     Dates: start: 2005
  19. LANTUS [Concomitant]
     Active Substance: INSULIN GLARGINE
     Indication: CARDIAC DISORDER
     Dosage: UNK
     Dates: start: 2005
  20. FISH OIL [Concomitant]
     Active Substance: FISH OIL
     Indication: CARDIAC DISORDER
     Dosage: UNK
     Dates: start: 2005
  21. AMLODIPINE [Concomitant]
     Active Substance: AMLODIPINE BESYLATE
     Indication: DIABETES MELLITUS
  22. PLAVIX [Concomitant]
     Active Substance: CLOPIDOGREL BISULFATE
     Indication: CARDIAC DISORDER
     Dosage: UNK
     Dates: start: 2005
  23. PROTONIX [Concomitant]
     Active Substance: PANTOPRAZOLE SODIUM
     Indication: CARDIAC DISORDER
     Dosage: UNK
     Dates: start: 2005
  24. LANTUS [Concomitant]
     Active Substance: INSULIN GLARGINE
     Indication: DIABETES MELLITUS
  25. CALCITRIOL. [Concomitant]
     Active Substance: CALCITRIOL
     Indication: CARDIAC DISORDER
     Dosage: UNK
     Dates: start: 2005
  26. COMPAZINE [Concomitant]
     Active Substance: PROCHLORPERAZINE MALEATE
     Indication: CARDIAC DISORDER
     Dosage: UNK
     Dates: start: 2005
  27. TRAMADOL. [Concomitant]
     Active Substance: TRAMADOL
     Indication: DIABETES MELLITUS

REACTIONS (9)
  - Abdominal pain lower [Recovered/Resolved]
  - Weight increased [Unknown]
  - Disease progression [Unknown]
  - Fatigue [Not Recovered/Not Resolved]
  - Nausea [Recovered/Resolved]
  - Dysgeusia [Not Recovered/Not Resolved]
  - Stomatitis [Recovered/Resolved]
  - Dyspepsia [Recovered/Resolved]
  - Renal cancer metastatic [Unknown]

NARRATIVE: CASE EVENT DATE: 2014
